FAERS Safety Report 9440030 (Version 1)
Quarter: 2013Q3

REPORT INFORMATION
  Report Type: Spontaneous
  Country: GB (occurrence: GB)
  Receive Date: 20130805
  Receipt Date: 20130805
  Transmission Date: 20140515
  Serious: Yes (Other)
  Sender: FDA-Public Use
  Company Number: GB-ROCHE-1256247

PATIENT
  Age: 47 Year
  Sex: Male

DRUGS (3)
  1. INTERFERON ALFA-2A [Suspect]
     Indication: HEPATITIS C
     Route: 065
  2. RIBAVIRIN [Suspect]
     Indication: HEPATITIS C
     Route: 065
  3. ZAPONEX [Suspect]
     Indication: SCHIZOPHRENIA
     Route: 048
     Dates: start: 20100908

REACTIONS (4)
  - Hepatitis C [Not Recovered/Not Resolved]
  - Neutrophil count decreased [Recovered/Resolved]
  - Platelet count decreased [Not Recovered/Not Resolved]
  - White blood cell count decreased [Recovered/Resolved]
